FAERS Safety Report 8582860-6 (Version None)
Quarter: 2012Q3

REPORT INFORMATION
  Report Type: 
  Country: None (occurrence: None)
  Receive Date: 20120809
  Receipt Date: 20120801
  Transmission Date: 20120928
  Serious: Yes (Hospitalization, Other)
  Sender: FDA-Public Use
  Company Number: US-ABBOTT-12P-163-0963168-00

PATIENT
  Sex: Male
  Weight: 95.794 kg

DRUGS (7)
  1. METHOTREXATE [Suspect]
     Route: 050
     Dates: start: 19910101, end: 20020101
  2. HUMIRA [Suspect]
     Indication: RHEUMATOID ARTHRITIS
     Dosage: THE PATIENT DID NOT HAVE LOT NUMBERS TO CORRELATE TO ADVERSE EVENTS
     Route: 058
     Dates: start: 20020101, end: 20100501
  3. METHOTREXATE [Suspect]
     Indication: RHEUMATOID ARTHRITIS
     Route: 048
     Dates: start: 19850101, end: 19890101
  4. ASCORBIC ACID [Concomitant]
     Indication: VITAMIN SUPPLEMENTATION
     Route: 048
  5. METOPROLOL TARTRATE [Concomitant]
     Indication: BLOOD PRESSURE
     Route: 048
  6. HUMIRA [Suspect]
     Route: 058
     Dates: start: 20100801
  7. MULTI-VITAMIN [Concomitant]
     Indication: VITAMIN SUPPLEMENTATION
     Route: 048

REACTIONS (13)
  - FEELING COLD [None]
  - GENERAL PHYSICAL HEALTH DETERIORATION [None]
  - VARICES OESOPHAGEAL [None]
  - WALKING AID USER [None]
  - HEPATIC ENZYME INCREASED [None]
  - ASTHENIA [None]
  - MALAISE [None]
  - HEPATIC CIRRHOSIS [None]
  - HERNIA [None]
  - ARTHRALGIA [None]
  - HEPATIC NEOPLASM MALIGNANT [None]
  - TREMOR [None]
  - PHARYNGEAL HAEMORRHAGE [None]
